FAERS Safety Report 6245933-9 (Version None)
Quarter: 2009Q2

REPORT INFORMATION
  Report Type: 
  Country: None (occurrence: None)
  Receive Date: 20090626
  Receipt Date: 20080723
  Transmission Date: 20091009
  Serious: No
  Sender: FDA-Public Use
  Company Number: A0739220A

PATIENT
  Age: 56 Year
  Sex: Female

DRUGS (2)
  1. IMITREX [Suspect]
     Indication: HEADACHE
     Dosage: 100MG SINGLE DOSE
     Route: 048
     Dates: start: 20080722, end: 20080722
  2. ZITHROMAX [Concomitant]

REACTIONS (1)
  - DRUG INEFFECTIVE [None]
